FAERS Safety Report 4810312-5 (Version None)
Quarter: 2005Q4

REPORT INFORMATION
  Report Type: 
  Country: None (occurrence: None)
  Receive Date: 20051024
  Receipt Date: 20051010
  Transmission Date: 20060501
  Serious: Yes (Death)
  Sender: FDA-Public Use
  Company Number: 2005144281

PATIENT
  Sex: Male

DRUGS (2)
  1. VIAGRA [Suspect]
     Indication: ILL-DEFINED DISORDER
     Dosage: ORAL
     Route: 048
     Dates: end: 20051001
  2. ALCOHOL (ETHANOL) [Suspect]
     Indication: ILL-DEFINED DISORDER
     Dates: end: 20051001

REACTIONS (3)
  - ALCOHOL USE [None]
  - CARDIAC ARREST [None]
  - OVERDOSE [None]
